FAERS Safety Report 6489832-6 (Version None)
Quarter: 2009Q4

REPORT INFORMATION
  Report Type: 
  Country: None (occurrence: None)
  Receive Date: 20091211
  Receipt Date: 20091204
  Transmission Date: 20100525
  Serious: Yes (Hospitalization)
  Sender: FDA-Public Use
  Company Number: US-BIOGENIDEC-2009BI034452

PATIENT
  Age: 60 Year
  Sex: Female

DRUGS (1)
  1. TYSABRI [Suspect]
     Indication: MULTIPLE SCLEROSIS
     Route: 042
     Dates: start: 20070501

REACTIONS (12)
  - BACK PAIN [None]
  - CHROMATURIA [None]
  - CONSTIPATION [None]
  - COORDINATION ABNORMAL [None]
  - FALL [None]
  - GROIN PAIN [None]
  - HAEMORRHAGE URINARY TRACT [None]
  - INSOMNIA [None]
  - JOINT INJURY [None]
  - NAUSEA [None]
  - URINARY TRACT INFECTION [None]
  - VAGINAL HAEMORRHAGE [None]
